FAERS Safety Report 25163833 (Version 1)
Quarter: 2025Q2

REPORT INFORMATION
  Report Type: Spontaneous
  Country: DE (occurrence: DE)
  Receive Date: 20250405
  Receipt Date: 20250405
  Transmission Date: 20250716
  Serious: Yes (Other)
  Sender: ABBVIE
  Company Number: DE-ABBVIE-6205734

PATIENT
  Sex: Female

DRUGS (3)
  1. VENETOCLAX [Suspect]
     Active Substance: VENETOCLAX
     Indication: Acute myeloid leukaemia
     Route: 048
  2. AZACITIDINE [Suspect]
     Active Substance: AZACITIDINE
     Indication: Acute myeloid leukaemia
  3. TIBSOVO [Concomitant]
     Active Substance: IVOSIDENIB
     Indication: Acute myeloid leukaemia

REACTIONS (2)
  - Pancytopenia [Unknown]
  - Autoimmune haemolytic anaemia [Unknown]
